FAERS Safety Report 16802889 (Version 1)
Quarter: 2019Q3

REPORT INFORMATION
  Report Type: Spontaneous
  Country: PT (occurrence: PT)
  Receive Date: 20190913
  Receipt Date: 20190913
  Transmission Date: 20191005
  Serious: Yes (Other)
  Sender: FDA-Public Use
  Company Number: PHHY2019PT210711

PATIENT
  Age: 51 Year
  Sex: Female

DRUGS (1)
  1. SECUKINUMAB. [Suspect]
     Active Substance: SECUKINUMAB
     Indication: ANKYLOSING SPONDYLITIS
     Dosage: UNK
     Route: 065
     Dates: start: 201805

REACTIONS (3)
  - Tuberculosis [Unknown]
  - Small airways disease [Unknown]
  - Productive cough [Unknown]

NARRATIVE: CASE EVENT DATE: 201902
